FAERS Safety Report 5292238-9 (Version None)
Quarter: 2007Q2

REPORT INFORMATION
  Report Type: 
  Country: None (occurrence: None)
  Receive Date: 20070410
  Receipt Date: 20070409
  Transmission Date: 20071010
  Serious: Yes (Other)
  Sender: FDA-Public Use
  Company Number: US-BRISTOL-MYERS SQUIBB COMPANY-13742408

PATIENT

DRUGS (1)
  1. ERBITUX [Suspect]

REACTIONS (1)
  - MENINGITIS ASEPTIC [None]
